FAERS Safety Report 6068779-3 (Version None)
Quarter: 2009Q1

REPORT INFORMATION
  Report Type: 
  Country: None (occurrence: None)
  Receive Date: 20090203
  Receipt Date: 20090121
  Transmission Date: 20090719
  Serious: Yes (Other)
  Sender: FDA-Public Use
  Company Number: DE-1168435

PATIENT
  Age: 58 Year
  Sex: 0

DRUGS (1)
  1. FLUORESCITE [Suspect]
     Indication: ANGIOGRAM RETINA
     Dosage: INTRAVENOUS BOLUS
     Route: 040

REACTIONS (5)
  - NO THERAPEUTIC RESPONSE [None]
  - OCULAR ICTERUS [None]
  - PHOTOPSIA [None]
  - RETINAL TEAR [None]
  - VISUAL ACUITY REDUCED [None]
